FAERS Safety Report 4423256-8 (Version None)
Quarter: 2004Q3

REPORT INFORMATION
  Report Type: 
  Country: None (occurrence: None)
  Receive Date: 20040810
  Receipt Date: 20040810
  Transmission Date: 20050211
  Serious: No
  Sender: FDA-Public Use
  Company Number: None

PATIENT
  Age: 39 Year
  Sex: Female

DRUGS (12)
  1. TRILEPTAL [Suspect]
     Indication: CONVULSION
     Dosage: 600MG Q12H OTHER
     Route: 050
     Dates: start: 20040327, end: 20040512
  2. CLONIDINE HCL [Concomitant]
  3. CAPTOPRIL [Concomitant]
  4. HEPARIN [Concomitant]
  5. ASPIRIN [Concomitant]
  6. LEXAPRO [Concomitant]
  7. PREVACID [Concomitant]
  8. COLACE [Concomitant]
  9. RISPERDAL [Concomitant]
  10. NYSTATIN [Concomitant]
  11. VIT C [Concomitant]
  12. GABAPENTIN [Concomitant]

REACTIONS (2)
  - INAPPROPRIATE ANTIDIURETIC HORMONE SECRETION [None]
  - LETHARGY [None]
